FAERS Safety Report 14057799 (Version 1)
Quarter: 2017Q4

REPORT INFORMATION
  Report Type: Spontaneous
  Country: US (occurrence: US)
  Receive Date: 20171006
  Receipt Date: 20171006
  Transmission Date: 20180321
  Serious: Yes (Other)
  Sender: FDA-Public Use
  Company Number: US-GLAXOSMITHKLINE-US2017GSK152206

PATIENT
  Sex: Female

DRUGS (3)
  1. BENLYSTA [Suspect]
     Active Substance: BELIMUMAB
     Indication: SYSTEMIC LUPUS ERYTHEMATOSUS
     Route: 058
  2. PLAQUENIL [Concomitant]
     Active Substance: HYDROXYCHLOROQUINE SULFATE
  3. TROKENDI [Concomitant]
     Active Substance: TOPIRAMATE

REACTIONS (7)
  - Influenza like illness [Unknown]
  - Systemic lupus erythematosus [Unknown]
  - Myalgia [Unknown]
  - Emotional disorder [Unknown]
  - Bone pain [Unknown]
  - Fatigue [Unknown]
  - Pyrexia [Unknown]
